FAERS Safety Report 20836151 (Version 4)
Quarter: 2023Q2

REPORT INFORMATION
  Report Type: Other
  Country: AU (occurrence: AU)
  Receive Date: 20220516
  Receipt Date: 20230510
  Transmission Date: 20230721
  Serious: Yes (Death, Hospitalization, Other)
  Sender: FDA-Public Use
  Company Number: AU-TOLMAR, INC.-22AU033812

PATIENT
  Age: 84 Year
  Sex: Male

DRUGS (1)
  1. ELIGARD [Suspect]
     Active Substance: LEUPROLIDE ACETATE
     Indication: Prostate cancer
     Dosage: 45 MILLIGRAM, Q 6 MONTH

REACTIONS (8)
  - Death [Fatal]
  - Urinary tract infection [Not Recovered/Not Resolved]
  - Sepsis [Not Recovered/Not Resolved]
  - Ankle fracture [Unknown]
  - Fall [Unknown]
  - Gastrointestinal hypermotility [Unknown]
  - Device leakage [Unknown]
  - Intentional dose omission [Unknown]

NARRATIVE: CASE EVENT DATE: 20220501
